FAERS Safety Report 7592334-7 (Version None)
Quarter: 2011Q2

REPORT INFORMATION
  Report Type: 
  Country: None (occurrence: None)
  Receive Date: 20110628
  Receipt Date: 20110620
  Transmission Date: 20111010
  Serious: Yes (Other)
  Sender: FDA-Public Use
  Company Number: 2010SP064933

PATIENT
  Age: 39 Year
  Sex: Female
  Weight: 81.6475 kg

DRUGS (3)
  1. COUMADIN [Suspect]
     Indication: COAGULOPATHY
     Dates: start: 20081201, end: 20090101
  2. VITAMIN B COMPLEX CAP [Concomitant]
  3. NUVARING [Suspect]
     Indication: CONTRACEPTION
     Dates: start: 20060401, end: 20081201

REACTIONS (20)
  - PULMONARY EMBOLISM [None]
  - PULMONARY HYPERTENSION [None]
  - ABDOMINAL WOUND DEHISCENCE [None]
  - PROCEDURAL COMPLICATION [None]
  - DEVICE EXPULSION [None]
  - INAPPROPRIATE SCHEDULE OF DRUG ADMINISTRATION [None]
  - MAY-THURNER SYNDROME [None]
  - ARRHYTHMIA [None]
  - INJURY [None]
  - THROMBOSIS [None]
  - THROMBOPHLEBITIS SUPERFICIAL [None]
  - AMNESIA [None]
  - RECTAL HAEMORRHAGE [None]
  - URINARY TRACT INFECTION [None]
  - OVARIAN CYST [None]
  - TACHYCARDIA [None]
  - DEEP VEIN THROMBOSIS [None]
  - CONVULSION [None]
  - THROMBOPHLEBITIS [None]
  - INTESTINAL PERFORATION [None]
